FAERS Safety Report 9035019 (Version 1)
Quarter: 2013Q1

REPORT INFORMATION
  Report Type: Spontaneous
  Country: DK (occurrence: None)
  Receive Date: 20130118
  Receipt Date: 20130118
  Transmission Date: 20140127
  Serious: Yes (Hospitalization)
  Sender: FDA-Public Use
  Company Number: 2013MA000478

PATIENT
  Age: 57 Year
  Sex: Female

DRUGS (5)
  1. LOSARTAN POTASSIUM [Suspect]
     Indication: HYPERTENSION
     Route: 048
     Dates: start: 20120811, end: 20121221
  2. COUMADIN [Suspect]
     Indication: VERTEBRAL ARTERY DISSECTION
     Dates: start: 20120811, end: 20120821
  3. SERTRALINE [Concomitant]
  4. LORAZEPAM [Concomitant]
  5. OMEPRAZOLE [Concomitant]

REACTIONS (2)
  - Hypotension [None]
  - International normalised ratio increased [None]
